FAERS Safety Report 7917416-9 (Version None)
Quarter: 2011Q4

REPORT INFORMATION
  Report Type: 
  Country: None (occurrence: None)
  Receive Date: 20111116
  Receipt Date: 20111111
  Transmission Date: 20120403
  Serious: Yes (Other)
  Sender: FDA-Public Use
  Company Number: CA-PFIZER INC-2011269505

PATIENT
  Age: 37 Year
  Sex: Male

DRUGS (13)
  1. DILANTIN [Interacting]
     Dosage: 300 MG, 2X/DAY
     Dates: start: 20110101
  2. DILTIAZEM [Concomitant]
     Indication: HEART RATE IRREGULAR
     Dosage: 30 MG, 2X/DAY
     Dates: start: 20110101
  3. METOPROLOL [Concomitant]
     Dosage: 25 MG, 1X/DAY
     Dates: start: 20110506
  4. DILANTIN [Suspect]
     Indication: CONVULSION
     Dosage: 250 MG, 2X/DAY
  5. CELEXA [Interacting]
     Indication: DEPRESSION
     Dosage: 20 MG, 1X/DAY
     Dates: start: 20110722
  6. METOPROLOL [Concomitant]
     Dosage: 100 MG, 2X/DAY
     Dates: start: 20110201
  7. SCOPOLAMINE [Concomitant]
     Indication: DROOLING
     Dosage: 1.5 MG, CYCLIC (1 EVERY 3 DAYS)
     Route: 062
     Dates: start: 20110301
  8. METOPROLOL [Concomitant]
     Dosage: 50 MG, 1X/DAY
     Dates: start: 20110401
  9. ENOXAPARIN [Concomitant]
     Indication: THROMBOSIS PROPHYLAXIS
     Dosage: 30 MG, 1X/DAY
     Dates: start: 20110101, end: 20111003
  10. HYDROXYZINE [Concomitant]
     Indication: PRURITUS
     Dosage: 20 MG, 4X/DAY
     Dates: start: 20110101, end: 20110526
  11. METOPROLOL [Concomitant]
     Indication: BLOOD PRESSURE
     Dosage: 150 MG, 2X/DAY
     Dates: start: 20110101
  12. RAMIPRIL [Concomitant]
     Indication: BLOOD PRESSURE ABNORMAL
     Dosage: 10 MG, 1X/DAY
     Dates: start: 20110222
  13. PREVACID [Concomitant]
     Indication: GASTROOESOPHAGEAL REFLUX DISEASE
     Dosage: 30 MG, 1X/DAY
     Dates: start: 20111026

REACTIONS (3)
  - DRUG INTERACTION [None]
  - ANTICONVULSANT DRUG LEVEL DECREASED [None]
  - ANTICONVULSANT DRUG LEVEL INCREASED [None]
